FAERS Safety Report 5759532-6 (Version None)
Quarter: 2008Q2

REPORT INFORMATION
  Report Type: 
  Country: None (occurrence: None)
  Receive Date: 20080604
  Receipt Date: 20080604
  Transmission Date: 20081010
  Serious: No
  Sender: FDA-Public Use
  Company Number: None

PATIENT
  Age: 61 Year
  Sex: Female
  Weight: 105.2345 kg

DRUGS (5)
  1. VANCOMYCIN [Suspect]
     Indication: CELLULITIS
     Dosage: 1250 MG Q12 IV
     Route: 042
     Dates: start: 20080407, end: 20080418
  2. CLINDAMYCIN HCL [Suspect]
     Indication: CELLULITIS
     Dosage: 900 Q8 HOURS IV
     Route: 042
     Dates: start: 20080412, end: 20080418
  3. MORPHINE [Concomitant]
  4. SEPTRA [Concomitant]
  5. DOCUSATE [Concomitant]

REACTIONS (2)
  - PRURITUS [None]
  - RASH MACULO-PAPULAR [None]
